FAERS Safety Report 15475177 (Version 1)
Quarter: 2018Q4

REPORT INFORMATION
  Report Type: Spontaneous
  Country: BR (occurrence: BR)
  Receive Date: 20181008
  Receipt Date: 20181008
  Transmission Date: 20190205
  Serious: Yes (Other)
  Sender: FDA-Public Use
  Company Number: BR-PFIZER INC-2018398891

PATIENT
  Age: 16 Year
  Sex: Male

DRUGS (1)
  1. LYRICA [Suspect]
     Active Substance: PREGABALIN
     Dosage: UNK

REACTIONS (7)
  - Gun shot wound [Unknown]
  - Motor dysfunction [Unknown]
  - Neuralgia [Unknown]
  - Allodynia [Unknown]
  - Hypoaesthesia [Unknown]
  - Product use issue [Unknown]
  - Paraesthesia [Unknown]
